FAERS Safety Report 7825994-3 (Version None)
Quarter: 2011Q4

REPORT INFORMATION
  Report Type: 
  Country: None (occurrence: None)
  Receive Date: 20111019
  Receipt Date: 20111008
  Transmission Date: 20120403
  Serious: No
  Sender: FDA-Public Use
  Company Number: US-B.I. PHARMACEUTICALS,INC./RIDGEFIELD-2011-BP-23907BP

PATIENT
  Age: 28 Year
  Sex: Female

DRUGS (1)
  1. ZANTAC 150 [Suspect]
     Indication: GASTRIC ULCER
     Dosage: 150 MG
     Route: 048
     Dates: start: 20111006

REACTIONS (1)
  - SKIN DISORDER [None]
